FAERS Safety Report 21440308 (Version 1)
Quarter: 2022Q4

REPORT INFORMATION
  Report Type: Report from Study
  Country: US (occurrence: US)
  Receive Date: 20221011
  Receipt Date: 20221011
  Transmission Date: 20230112
  Serious: Yes (Hospitalization, Other)
  Sender: FDA-Public Use
  Company Number: US-AMNEAL PHARMACEUTICALS-2021-AMRX-05335

PATIENT
  Age: 41 Year
  Sex: Female
  Weight: 54.422 kg

DRUGS (1)
  1. LIORESAL [Suspect]
     Active Substance: BACLOFEN
     Indication: Muscle spasticity
     Dosage: 575.9 ?G, \DAY
     Route: 037

REACTIONS (8)
  - Hospitalisation [Recovered/Resolved]
  - Device related infection [Recovered/Resolved]
  - Medical device removal [Recovered/Resolved]
  - Pain [None]
  - Product contamination [Recovered/Resolved]
  - Therapeutic response decreased [Recovered/Resolved]
  - Complication associated with device [Recovered/Resolved]
  - Complication associated with device [Recovered/Resolved]

NARRATIVE: CASE EVENT DATE: 20091227
